FAERS Safety Report 5719417-8 (Version None)
Quarter: 2008Q2

REPORT INFORMATION
  Report Type: 
  Country: None (occurrence: None)
  Receive Date: 20080428
  Receipt Date: 20080422
  Transmission Date: 20081010
  Serious: Yes (Life-Threatening)
  Sender: FDA-Public Use
  Company Number: PHHY2008IT06171

PATIENT
  Age: 34 Year
  Sex: Female

DRUGS (3)
  1. SUFENTANIL CITRATE [Concomitant]
     Dosage: 5 ML, INJECTABLE
  2. MEPIVACAINE HCL [Concomitant]
     Dosage: 20 MG/ML INJECTABLE
  3. SYNTOCINON [Suspect]
     Indication: UTERINE ATONY
     Dosage: 5 UI/ML, 2 POSOLOGIC UNITS
     Route: 042
     Dates: start: 20080414, end: 20080414

REACTIONS (4)
  - HOT FLUSH [None]
  - HYPOTENSION [None]
  - PARAESTHESIA [None]
  - PRURITUS GENERALISED [None]
